FAERS Safety Report 18428671 (Version 2)
Quarter: 2020Q4

REPORT INFORMATION
  Report Type: Other
  Country: HR (occurrence: HR)
  Receive Date: 20201026
  Receipt Date: 20201124
  Transmission Date: 20210114
  Serious: No
  Sender: FDA-Public Use
  Company Number: HR-ROCHE-2701839

PATIENT
  Age: 14 Year

DRUGS (9)
  1. DECORTIN [Concomitant]
     Active Substance: PREDNISONE
     Indication: TAKAYASU^S ARTERITIS
  2. MEDROL [Concomitant]
     Active Substance: METHYLPREDNISOLONE
     Indication: TAKAYASU^S ARTERITIS
  3. ASPIRIN. [Concomitant]
     Active Substance: ASPIRIN
     Indication: TAKAYASU^S ARTERITIS
  4. FOLACIN [Concomitant]
     Indication: TAKAYASU^S ARTERITIS
  5. MABTHERA [Suspect]
     Active Substance: RITUXIMAB
     Indication: TAKAYASU^S ARTERITIS
     Dosage: FIRST CYCLE
     Route: 041
     Dates: start: 20140324
  6. ROCALTROL [Concomitant]
     Active Substance: CALCITRIOL
     Indication: TAKAYASU^S ARTERITIS
  7. MABTHERA [Suspect]
     Active Substance: RITUXIMAB
     Dosage: SECOND CYCLE
     Route: 041
     Dates: start: 20140414
  8. ENDOXAN [Concomitant]
     Active Substance: CYCLOPHOSPHAMIDE
     Indication: TAKAYASU^S ARTERITIS
  9. METHOTREXATE. [Concomitant]
     Active Substance: METHOTREXATE
     Indication: TAKAYASU^S ARTERITIS

REACTIONS (4)
  - Headache [Recovered/Resolved]
  - Off label use [Unknown]
  - Muscle spasms [Unknown]
  - Product use in unapproved indication [Unknown]
